FAERS Safety Report 21381778 (Version 1)
Quarter: 2022Q3

REPORT INFORMATION
  Report Type: Spontaneous
  Country: BR (occurrence: BR)
  Receive Date: 20220927
  Receipt Date: 20220927
  Transmission Date: 20221027
  Serious: Yes (Other)
  Sender: FDA-Public Use
  Company Number: BR-SA-SAC20220926000045

PATIENT
  Age: 36 Year
  Sex: Female
  Weight: 70 kg

DRUGS (2)
  1. ENOXAPARIN SODIUM [Suspect]
     Active Substance: ENOXAPARIN SODIUM
     Indication: Infertility
     Dosage: UNK, QD
     Route: 065
     Dates: start: 202203
  2. OGESTAN [COLECALCIFEROL;FOLIC ACID;IODINE;OMEGA-3 FATTY ACIDS;VITAMIN [Concomitant]
     Dosage: UNK, QD
     Dates: start: 2019

REACTIONS (2)
  - Abortion spontaneous [Unknown]
  - Product use in unapproved indication [Unknown]

NARRATIVE: CASE EVENT DATE: 20220101
